FAERS Safety Report 4533059-1 (Version None)
Quarter: 2004Q4

REPORT INFORMATION
  Report Type: 
  Country: None (occurrence: None)
  Receive Date: 20041221
  Receipt Date: 20041217
  Transmission Date: 20050328
  Serious: Yes (Death)
  Sender: FDA-Public Use
  Company Number: 200414752FR

PATIENT
  Age: 73 Year
  Sex: Female

DRUGS (6)
  1. LANTUS [Suspect]
     Indication: DIABETES MELLITUS
     Route: 058
     Dates: start: 20040415, end: 20040519
  2. LASILIX FAIBLE [Suspect]
     Indication: CARDIAC FAILURE
     Route: 048
     Dates: start: 20040517, end: 20040519
  3. EFFEXOR [Suspect]
     Indication: DYSTHYMIC DISORDER
     Route: 048
     Dates: start: 20040405, end: 20040519
  4. HEMIGOXINE NATIVELLE [Suspect]
     Indication: CARDIAC FAILURE
     Route: 048
     Dates: start: 20040415, end: 20040519
  5. AMLODIPINE [Suspect]
     Indication: ESSENTIAL HYPERTENSION
     Route: 048
     Dates: start: 20040405, end: 20040519
  6. THALIDOMIDE [Suspect]
     Indication: MULTIPLE MYELOMA
     Route: 048
     Dates: start: 20040209, end: 20040519

REACTIONS (8)
  - ANAEMIA [None]
  - CARDIAC FAILURE [None]
  - CONDITION AGGRAVATED [None]
  - DIABETES MELLITUS INSULIN-DEPENDENT [None]
  - DYSTHYMIC DISORDER [None]
  - ESSENTIAL HYPERTENSION [None]
  - HYPERGAMMAGLOBULINAEMIA [None]
  - HYPOALBUMINAEMIA [None]
